FAERS Safety Report 22625804 (Version 1)
Quarter: 2023Q2

REPORT INFORMATION
  Report Type: Spontaneous
  Country: DE (occurrence: DE)
  Receive Date: 20230621
  Receipt Date: 20230621
  Transmission Date: 20230722
  Serious: Yes (Death, Other)
  Sender: FDA-Public Use
  Company Number: DE-002147023-NVSC2023DE136470

PATIENT

DRUGS (15)
  1. PEMETREXED [Suspect]
     Active Substance: PEMETREXED
     Indication: Lymphangiosis carcinomatosa
     Dosage: UNK UNK, UNKNOWN
     Route: 065
     Dates: start: 201906, end: 202003
  2. PEMETREXED [Suspect]
     Active Substance: PEMETREXED
     Indication: Bronchial carcinoma
  3. PEMETREXED [Suspect]
     Active Substance: PEMETREXED
     Indication: Malignant peritoneal neoplasm
  4. PEMETREXED [Suspect]
     Active Substance: PEMETREXED
     Indication: Adenocarcinoma
  5. PEMETREXED [Suspect]
     Active Substance: PEMETREXED
     Indication: Pleural neoplasm
  6. PEMBROLIZUMAB [Suspect]
     Active Substance: PEMBROLIZUMAB
     Indication: Malignant peritoneal neoplasm
     Dosage: UNK
     Route: 065
     Dates: start: 201906, end: 2021
  7. PEMBROLIZUMAB [Suspect]
     Active Substance: PEMBROLIZUMAB
     Indication: Lymphangiosis carcinomatosa
  8. PEMBROLIZUMAB [Suspect]
     Active Substance: PEMBROLIZUMAB
     Indication: Pleural neoplasm
  9. PEMBROLIZUMAB [Suspect]
     Active Substance: PEMBROLIZUMAB
     Indication: Adenocarcinoma
  10. PEMBROLIZUMAB [Suspect]
     Active Substance: PEMBROLIZUMAB
     Indication: Bronchial carcinoma
  11. CARBOPLATIN [Suspect]
     Active Substance: CARBOPLATIN
     Indication: Adenocarcinoma
     Dosage: UNK, UNKNOWN
     Route: 065
     Dates: start: 201906, end: 201909
  12. CARBOPLATIN [Suspect]
     Active Substance: CARBOPLATIN
     Indication: Pleural neoplasm
  13. CARBOPLATIN [Suspect]
     Active Substance: CARBOPLATIN
     Indication: Lymphangiosis carcinomatosa
  14. CARBOPLATIN [Suspect]
     Active Substance: CARBOPLATIN
     Indication: Bronchial carcinoma
  15. CARBOPLATIN [Suspect]
     Active Substance: CARBOPLATIN
     Indication: Malignant peritoneal neoplasm

REACTIONS (9)
  - Death [Fatal]
  - Pneumonia [Unknown]
  - Malignant neoplasm progression [Unknown]
  - Bronchial carcinoma [Unknown]
  - Adenocarcinoma [Unknown]
  - Pleural effusion [Unknown]
  - Drug resistance mutation [Unknown]
  - Carpal tunnel syndrome [Unknown]
  - Off label use [Unknown]

NARRATIVE: CASE EVENT DATE: 20191201
